FAERS Safety Report 5262416-3 (Version None)
Quarter: 2007Q1

REPORT INFORMATION
  Report Type: 
  Country: None (occurrence: None)
  Receive Date: 20061221
  Receipt Date: 20060630
  Transmission Date: 20070707
  Serious: Yes (Other)
  Sender: FDA-Public Use
  Company Number: PHEH2006US08502

PATIENT
  Sex: Female

DRUGS (1)
  1. MIOCHOL-E [Suspect]
     Indication: IRIDECTOMY
     Dosage: INTRAOCULAR INJ
     Route: 031

REACTIONS (1)
  - CORNEAL DECOMPENSATION [None]
